FAERS Safety Report 7370900 (Version 2)
Quarter: 2013Q1

REPORT INFORMATION
  Report Type: Report from Study
  Country: US (occurrence: US)
  Receive Date: 20100429
  Receipt Date: 20130128
  Transmission Date: 20140127
  Serious: Yes (Death, Hospitalization)
  Sender: FDA-Public Use
  Company Number: US-AMGEN-KDC407448

PATIENT
  Age: 78 Year
  Sex: Female

DRUGS (2)
  1. ETANERCEPT [Suspect]
     Indication: PSORIASIS
     Dosage: 50 MG, QWK
     Route: 058
     Dates: start: 20070227, end: 2008
  2. CLOBETASOL PROPIONATE [Concomitant]
     Dosage: UNK UNK, PRN

REACTIONS (2)
  - Bladder transitional cell carcinoma [Fatal]
  - Death [Fatal]
